APPROVED DRUG PRODUCT: PHENYTOIN
Active Ingredient: PHENYTOIN
Strength: 125MG/5ML
Dosage Form/Route: SUSPENSION;ORAL
Application: A040420 | Product #001
Applicant: PAI HOLDINGS LLC DBA PHARMACEUTICAL ASSOCIATES INC
Approved: Apr 19, 2002 | RLD: No | RS: No | Type: DISCN